FAERS Safety Report 4433748-3 (Version None)
Quarter: 2004Q3

REPORT INFORMATION
  Report Type: 
  Country: None (occurrence: None)
  Receive Date: 20040826
  Receipt Date: 20040819
  Transmission Date: 20050211
  Serious: Yes (Other)
  Sender: FDA-Public Use
  Company Number: CH-MERCK-0408CHE00021

PATIENT
  Age: 42 Year
  Sex: Male
  Weight: 85 kg

DRUGS (3)
  1. DOXYCYCLINE [Concomitant]
     Route: 048
     Dates: start: 20040429, end: 20040508
  2. VIOXX [Suspect]
     Indication: INFECTION
     Route: 048
     Dates: start: 20040429, end: 20040430
  3. VIOXX [Suspect]
     Indication: INFLAMMATION
     Route: 048
     Dates: start: 20040429, end: 20040430

REACTIONS (2)
  - EXANTHEM [None]
  - FACE OEDEMA [None]
